FAERS Safety Report 4453302-7 (Version None)
Quarter: 2004Q3

REPORT INFORMATION
  Report Type: 
  Country: None (occurrence: None)
  Receive Date: 20040920
  Receipt Date: 20040810
  Transmission Date: 20050211
  Serious: Yes (Other)
  Sender: FDA-Public Use
  Company Number: GB-MERCK-0408GBR00089

PATIENT
  Sex: Male

DRUGS (5)
  1. ATENOLOL [Concomitant]
     Indication: HYPERTENSION
     Route: 065
     Dates: start: 20000501
  2. ZETIA [Suspect]
     Indication: HYPERLIPIDAEMIA
     Route: 048
     Dates: start: 20040628, end: 20040701
  3. FENOFIBRATE [Concomitant]
     Indication: HYPERLIPIDAEMIA
     Route: 065
     Dates: start: 20000501
  4. IBUPROFEN [Concomitant]
     Indication: ARTHRITIS
     Route: 065
     Dates: start: 20000501
  5. PRAVASTATIN SODIUM [Concomitant]
     Indication: HYPERLIPIDAEMIA
     Route: 065
     Dates: start: 20000501

REACTIONS (1)
  - PALPITATIONS [None]
